FAERS Safety Report 19044874 (Version 1)
Quarter: 2021Q1

REPORT INFORMATION
  Report Type: Report from Study
  Country: US (occurrence: US)
  Receive Date: 20210322
  Receipt Date: 20210322
  Transmission Date: 20210420
  Serious: Yes (Hospitalization)
  Sender: FDA-Public Use
  Company Number: US-BAYER-2021-105640

PATIENT
  Age: 64 Year
  Sex: Male

DRUGS (1)
  1. STIVARGA [Suspect]
     Active Substance: REGORAFENIB
     Indication: COLORECTAL CANCER
     Dosage: DAILY DOSE 40 MG
     Route: 048
     Dates: start: 20210310, end: 20210311

REACTIONS (10)
  - Rectal haemorrhage [Unknown]
  - Feeding disorder [Unknown]
  - Product use issue [Not Recovered/Not Resolved]
  - Kidney infection [Unknown]
  - Off label use [None]
  - Pain [Unknown]
  - Vomiting [Unknown]
  - Malaise [Unknown]
  - Product dose omission issue [Not Recovered/Not Resolved]
  - Asthenia [Unknown]

NARRATIVE: CASE EVENT DATE: 20210310
